FAERS Safety Report 19548077 (Version 1)
Quarter: 2021Q3

REPORT INFORMATION
  Report Type: Spontaneous
  Country: US (occurrence: US)
  Receive Date: 20210714
  Receipt Date: 20210714
  Transmission Date: 20211014
  Serious: No
  Sender: FDA-Public Use
  Company Number: None

PATIENT
  Age: 26 Year
  Sex: Female

DRUGS (2)
  1. COSENTYX [Suspect]
     Active Substance: SECUKINUMAB
     Indication: PSORIATIC ARTHROPATHY
     Dosage: OTHER FREQUENCY:OTHER;?
     Route: 058
     Dates: start: 20210201
  2. COSENTYX [Suspect]
     Active Substance: SECUKINUMAB
     Indication: PSORIASIS
     Dosage: OTHER FREQUENCY:OTHER;?
     Route: 058
     Dates: start: 20210201

REACTIONS (8)
  - Myalgia [None]
  - Genital ulceration [None]
  - Mouth ulceration [None]
  - Headache [None]
  - Arthralgia [None]
  - Fatigue [None]
  - Acne [None]
  - Pollakiuria [None]

NARRATIVE: CASE EVENT DATE: 20210301
